FAERS Safety Report 18446684 (Version 1)
Quarter: 2020Q4

REPORT INFORMATION
  Report Type: Spontaneous
  Country: GB (occurrence: GB)
  Receive Date: 20201030
  Receipt Date: 20201030
  Transmission Date: 20210114
  Serious: Yes (Other)
  Sender: FDA-Public Use
  Company Number: GB-AMGEN-GBRSP2020173405

PATIENT
  Age: 69 Year
  Sex: Female

DRUGS (6)
  1. ALLOPURINOL. [Suspect]
     Active Substance: ALLOPURINOL
     Indication: PRODUCT USED FOR UNKNOWN INDICATION
     Dosage: UNK
     Route: 065
  2. ASPIRIN [ACETYLSALICYLIC ACID] [Concomitant]
     Active Substance: ASPIRIN
     Dosage: UNK
     Dates: start: 2019
  3. FILGRASTIM [Suspect]
     Active Substance: FILGRASTIM
     Indication: THROMBOCYTOPENIA
     Dosage: UNK, 2 TIMES/WK
     Route: 065
     Dates: end: 2019
  4. KYPROLIS [Suspect]
     Active Substance: CARFILZOMIB
     Indication: PLASMACYTOMA
     Dosage: UNK
     Route: 065
     Dates: start: 201812
  5. FILGRASTIM [Suspect]
     Active Substance: FILGRASTIM
     Indication: NEUTROPENIA
  6. DEXAMETHASONE. [Concomitant]
     Active Substance: DEXAMETHASONE
     Indication: PLASMACYTOMA
     Dosage: UNK

REACTIONS (4)
  - Diarrhoea [Unknown]
  - Rash [Unknown]
  - Thrombocytopenia [Recovering/Resolving]
  - Neutropenia [Recovered/Resolved]
